FAERS Safety Report 11319037 (Version 1)
Quarter: 2015Q3

REPORT INFORMATION
  Report Type: Spontaneous
  Country: US (occurrence: US)
  Receive Date: 20150729
  Receipt Date: 20150729
  Transmission Date: 20151125
  Serious: No
  Sender: FDA-Public Use
  Company Number: US-DRREDDYS-USA/USA/15/0046901

PATIENT
  Age: 62 Year
  Sex: Female

DRUGS (1)
  1. OMEPRAZOLE MAGNESIUM DELAYED RELEASE OTC [Suspect]
     Active Substance: OMEPRAZOLE MAGNESIUM
     Indication: PRODUCT USED FOR UNKNOWN INDICATION
     Dates: start: 20150209, end: 20150321

REACTIONS (2)
  - Dyspepsia [Unknown]
  - Product quality issue [Unknown]

NARRATIVE: CASE EVENT DATE: 20150321
